FAERS Safety Report 7239504-5 (Version None)
Quarter: 2011Q1

REPORT INFORMATION
  Report Type: 
  Country: None (occurrence: None)
  Receive Date: 20110121
  Receipt Date: 20110114
  Transmission Date: 20110831
  Serious: Yes (Other)
  Sender: FDA-Public Use
  Company Number: US-US-EMD SERONO, INC.-7016223

PATIENT
  Sex: Female

DRUGS (4)
  1. REBIF [Suspect]
     Indication: MULTIPLE SCLEROSIS
     Route: 058
     Dates: start: 20080625
  2. REBIF [Suspect]
     Route: 058
     Dates: end: 20101119
  3. REBIF [Suspect]
     Route: 058
     Dates: start: 20101217
  4. OTHER UNSPECIFIED MEDICATIONS [Concomitant]

REACTIONS (3)
  - BREAST CANCER [None]
  - RADIATION SICKNESS SYNDROME [None]
  - FATIGUE [None]
